FAERS Safety Report 10929684 (Version 2)
Quarter: 2015Q2

REPORT INFORMATION
  Report Type: Spontaneous
  Country: US (occurrence: US)
  Receive Date: 20150319
  Receipt Date: 20150424
  Transmission Date: 20150821
  Serious: Yes (Other)
  Sender: FDA-Public Use
  Company Number: US-BAYER-2015-038939

PATIENT
  Sex: Female

DRUGS (2)
  1. GILENYA [Suspect]
     Active Substance: FINGOLIMOD HYDROCHLORIDE
     Dosage: UNK
     Dates: start: 201104
  2. BETASERON [Suspect]
     Active Substance: INTERFERON BETA-1B
     Indication: MULTIPLE SCLEROSIS
     Dosage: 0.3 MG, QOD
     Route: 058
     Dates: start: 200707, end: 201104

REACTIONS (9)
  - Immunosuppression [None]
  - Polymenorrhoea [None]
  - Headache [None]
  - Feeling hot [None]
  - Dizziness [None]
  - Peripheral swelling [None]
  - Herpes zoster [None]
  - Injection site ulcer [None]
  - Joint swelling [None]
